FAERS Safety Report 8598874-6 (Version None)
Quarter: 2012Q3

REPORT INFORMATION
  Report Type: 
  Country: None (occurrence: None)
  Receive Date: 20120816
  Receipt Date: 19900323
  Transmission Date: 20120928
  Serious: Yes (Other)
  Sender: FDA-Public Use
  Company Number: US-ROCHE-1100826

PATIENT
  Sex: Male

DRUGS (2)
  1. ACTIVASE [Suspect]
     Dosage: 20 CC/ HR FOR 1 HOUR (20MG/HR)
     Route: 040
     Dates: start: 19900225
  2. ACTIVASE [Suspect]
     Indication: ACUTE MYOCARDIAL INFARCTION
     Route: 042

REACTIONS (4)
  - BREAST PAIN [None]
  - NAUSEA [None]
  - CHEST PAIN [None]
  - SINUS BRADYCARDIA [None]
